FAERS Safety Report 4793752-2 (Version None)
Quarter: 2005Q4

REPORT INFORMATION
  Report Type: 
  Country: None (occurrence: None)
  Receive Date: 20051011
  Receipt Date: 20050930
  Transmission Date: 20060501
  Serious: Yes (Hospitalization)
  Sender: FDA-Public Use
  Company Number: FR-JNJFOC-20051000335

PATIENT
  Age: 65 Year
  Sex: Female

DRUGS (6)
  1. REMICADE [Suspect]
     Indication: RHEUMATOID ARTHRITIS
     Dosage: 22ND INFUSION.
     Route: 042
  2. NOVATREX [Concomitant]
     Indication: RHEUMATOID ARTHRITIS
     Route: 048
  3. EUPANTOL [Concomitant]
     Indication: PROPHYLAXIS
     Route: 048
  4. CELEBREX [Concomitant]
     Indication: RHEUMATOID ARTHRITIS
     Route: 048
  5. CORTANCYL [Concomitant]
     Indication: RHEUMATOID ARTHRITIS
     Route: 048
  6. PARACETAMOL [Concomitant]
     Route: 048

REACTIONS (1)
  - SYSTEMIC LUPUS ERYTHEMATOSUS [None]
